FAERS Safety Report 26028507 (Version 1)
Quarter: 2025Q4

REPORT INFORMATION
  Report Type: Spontaneous
  Country: EU (occurrence: EU)
  Receive Date: 20251111
  Receipt Date: 20251111
  Transmission Date: 20260118
  Serious: Yes (Hospitalization, Other)
  Sender: JOHNSON AND JOHNSON
  Company Number: None

PATIENT
  Age: 29 Year
  Sex: Male
  Weight: 54 kg

DRUGS (15)
  1. BEDAQUILINE [Suspect]
     Active Substance: BEDAQUILINE
     Indication: Tuberculosis
     Dosage: 400MG
     Route: 048
     Dates: start: 20250626
  2. BEDAQUILINE [Suspect]
     Active Substance: BEDAQUILINE
     Dosage: 200MG 3X/WEEK
     Route: 048
     Dates: start: 20250711
  3. ISONIAZID [Suspect]
     Active Substance: ISONIAZID
     Indication: Tuberculosis
     Dosage: 300 MG
     Route: 048
     Dates: start: 20250503, end: 20250807
  4. PYRAZINAMIDE [Suspect]
     Active Substance: PYRAZINAMIDE
     Indication: Tuberculosis
     Dosage: 1500 MG
     Route: 048
     Dates: start: 20250503
  5. PYRIDOXINE [Suspect]
     Active Substance: PYRIDOXINE
     Indication: Prophylaxis
     Route: 048
     Dates: start: 20250612, end: 20250807
  6. ETHAMBUTOL [Suspect]
     Active Substance: ETHAMBUTOL HYDROCHLORIDE
     Indication: Tuberculosis
     Dosage: 1000 MG
     Route: 048
     Dates: start: 20250614, end: 20250827
  7. ETHAMBUTOL [Suspect]
     Active Substance: ETHAMBUTOL HYDROCHLORIDE
     Dosage: 800 MG
     Route: 048
     Dates: start: 20250621, end: 20250626
  8. ETHAMBUTOL [Suspect]
     Active Substance: ETHAMBUTOL HYDROCHLORIDE
     Dosage: 1000 MG
     Route: 048
     Dates: start: 20250626, end: 20250701
  9. ETHAMBUTOL [Suspect]
     Active Substance: ETHAMBUTOL HYDROCHLORIDE
     Dosage: 1200 MG
     Route: 048
     Dates: start: 20250701, end: 20250827
  10. INFLIXIMAB INFUUS [Concomitant]
     Indication: Product used for unknown indication
     Dates: start: 20250704
  11. FOSFAATDRANK [Concomitant]
     Indication: Product used for unknown indication
     Route: 048
  12. POTASSIUM CHLORIDE [Concomitant]
     Active Substance: POTASSIUM CHLORIDE
     Indication: Product used for unknown indication
     Route: 048
  13. MESALAMINE [Concomitant]
     Active Substance: MESALAMINE
     Indication: Product used for unknown indication
     Route: 048
  14. PREDNISOLONE [Concomitant]
     Active Substance: PREDNISOLONE
     Indication: Product used for unknown indication
  15. URSODEOXYCHOLZUUR TABLET 450MG / Brand name not specified [Concomitant]
     Indication: Product used for unknown indication
     Route: 048

REACTIONS (3)
  - Anaemia [Not Recovered/Not Resolved]
  - Leukopenia [Recovered/Resolved]
  - Pancytopenia [Recovered/Resolved]

NARRATIVE: CASE EVENT DATE: 20250801
